FAERS Safety Report 11784026 (Version 3)
Quarter: 2016Q1

REPORT INFORMATION
  Report Type: Report from Study
  Country: FR (occurrence: FR)
  Receive Date: 20151128
  Receipt Date: 20160106
  Transmission Date: 20160525
  Serious: Yes (Other)
  Sender: FDA-Public Use
  Company Number: FR-BRISTOL-MYERS SQUIBB COMPANY-BMS-2015-083183

PATIENT
  Age: 48 Year
  Sex: Male
  Weight: 69 kg

DRUGS (3)
  1. NIVOLUMAB [Suspect]
     Active Substance: NIVOLUMAB
     Indication: HODGKIN^S DISEASE
     Dosage: 3 MG/KG, 200MG
     Route: 042
     Dates: start: 20150601, end: 20151007
  2. NIVOLUMAB [Suspect]
     Active Substance: NIVOLUMAB
     Dosage: 3 MG/KG, 200MG
     Route: 042
     Dates: start: 20151028
  3. NIVOLUMAB [Suspect]
     Active Substance: NIVOLUMAB
     Dosage: 3 MG/KG, 200MG
     Route: 042
     Dates: start: 20151125

REACTIONS (2)
  - Herpes zoster [Recovered/Resolved]
  - Positron emission tomogram abnormal [Unknown]

NARRATIVE: CASE EVENT DATE: 20151104
